FAERS Safety Report 6751543-7 (Version None)
Quarter: 2010Q2

REPORT INFORMATION
  Report Type: 
  Country: None (occurrence: None)
  Receive Date: 20100528
  Receipt Date: 20100406
  Transmission Date: 20101027
  Serious: No
  Sender: FDA-Public Use
  Company Number: 550190

PATIENT
  Age: 58 Year
  Sex: Male
  Weight: 91 kg

DRUGS (3)
  1. HYDROMORPHONE HCL [Suspect]
     Indication: PAIN
     Dosage: 0.8MG, ONCE, INTRAVENOUS, 0.1MG/HR, CONTINUOUS, 0.3MG PCA DOSE, 10MINUTE PATIENT LOCKOUT
     Route: 042
     Dates: start: 20100306, end: 20100306
  2. HYDROMORPHONE HCL [Suspect]
     Indication: PAIN
     Dosage: 0.8MG, ONCE, INTRAVENOUS, 0.1MG/HR, CONTINUOUS, 0.3MG PCA DOSE, 10MINUTE PATIENT LOCKOUT
     Route: 042
     Dates: start: 20100306, end: 20100307
  3. HYDROMORPHONE HCL [Suspect]
     Indication: PAIN
     Dosage: 0.8MG, ONCE, INTRAVENOUS, 0.1MG/HR, CONTINUOUS, 0.3MG PCA DOSE, 10MINUTE PATIENT LOCKOUT
     Route: 042
     Dates: start: 20100306, end: 20100307

REACTIONS (9)
  - BLOOD PRESSURE DECREASED [None]
  - CARDIO-RESPIRATORY ARREST [None]
  - HEART RATE INCREASED [None]
  - INCORRECT DOSE ADMINISTERED BY DEVICE [None]
  - OXYGEN SATURATION DECREASED [None]
  - PULSE ABNORMAL [None]
  - SNORING [None]
  - UNRESPONSIVE TO STIMULI [None]
  - WRONG TECHNIQUE IN DRUG USAGE PROCESS [None]
